FAERS Safety Report 22030002 (Version 1)
Quarter: 2023Q1

REPORT INFORMATION
  Report Type: Spontaneous
  Country: US (occurrence: US)
  Receive Date: 20230223
  Receipt Date: 20230223
  Transmission Date: 20230418
  Serious: Yes (Other)
  Sender: FDA-Public Use
  Company Number: US-LANTHEUS-LMI-2022-01366

PATIENT

DRUGS (1)
  1. DEFINITY [Suspect]
     Active Substance: PERFLUTREN
     Indication: Stress echocardiogram
     Dosage: UNK

REACTIONS (5)
  - Anaphylactic reaction [Unknown]
  - Pharyngeal swelling [Unknown]
  - Lip swelling [Unknown]
  - Pruritus [Unknown]
  - Urticaria [Unknown]
